FAERS Safety Report 25054322 (Version 1)
Quarter: 2025Q1

REPORT INFORMATION
  Report Type: Spontaneous
  Country: US (occurrence: US)
  Receive Date: 20250307
  Receipt Date: 20250307
  Transmission Date: 20250408
  Serious: No
  Sender: SANOFI AVENTIS
  Company Number: US-SA-2025SA066902

PATIENT
  Age: 17 Year
  Sex: Male

DRUGS (6)
  1. DUPIXENT [Suspect]
     Active Substance: DUPILUMAB
     Indication: Dermatitis atopic
     Route: 058
  2. BENADRYL [Concomitant]
     Active Substance: DIPHENHYDRAMINE HYDROCHLORIDE
  3. DESONIDE [Concomitant]
     Active Substance: DESONIDE
  4. EPIPEN [Concomitant]
     Active Substance: EPINEPHRINE
  5. TACROLIMUS [Concomitant]
     Active Substance: TACROLIMUS
  6. MOMETASONE [Concomitant]
     Active Substance: MOMETASONE

REACTIONS (1)
  - Therapeutic product effect incomplete [Unknown]
